FAERS Safety Report 19058586 (Version 1)
Quarter: 2021Q1

REPORT INFORMATION
  Report Type: Spontaneous
  Country: CA (occurrence: CA)
  Receive Date: 20210325
  Receipt Date: 20210325
  Transmission Date: 20210420
  Serious: Yes (Death)
  Sender: FDA-Public Use
  Company Number: CA-FRESENIUS KABI-FK202102959

PATIENT
  Age: 48 Year
  Sex: Male
  Weight: 86 kg

DRUGS (1)
  1. BLEOMYCIN [Suspect]
     Active Substance: BLEOMYCIN SULFATE
     Indication: TESTICULAR SEMINOMA (PURE) STAGE II
     Dosage: BLEOMYCIN SULPHATE FOR INJECTION?30 UNITS
     Route: 041

REACTIONS (8)
  - Anaemia of chronic disease [Fatal]
  - Cough [Fatal]
  - Pulmonary embolism [Fatal]
  - Respiratory failure [Fatal]
  - Pulmonary toxicity [Fatal]
  - Hypoxia [Fatal]
  - Lung infiltration [Fatal]
  - Dyspnoea [Fatal]
